FAERS Safety Report 10356599 (Version 1)
Quarter: 2014Q3

REPORT INFORMATION
  Report Type: Spontaneous
  Country: IT (occurrence: IT)
  Receive Date: 20140801
  Receipt Date: 20140801
  Transmission Date: 20150326
  Serious: Yes (Death, Other)
  Sender: FDA-Public Use
  Company Number: PHHY2014IT093755

PATIENT
  Age: 64 Year
  Sex: Male

DRUGS (5)
  1. LACOSAMIDE [Concomitant]
     Active Substance: LACOSAMIDE
     Dosage: 100 MG, BID
     Route: 048
  2. LEVETIRACETAM. [Suspect]
     Active Substance: LEVETIRACETAM
     Indication: CONVULSION
     Dosage: 300 MG, PER DAY
  3. PHENOBARBITAL. [Suspect]
     Active Substance: PHENOBARBITAL
     Indication: CONVULSION
     Dosage: 50 MG, PER DAY
  4. LACOSAMIDE [Concomitant]
     Active Substance: LACOSAMIDE
     Indication: CONVULSION
     Dosage: 200 MG, SINGLE ORAL LOADING DOSE
     Route: 048
  5. LACOSAMIDE [Concomitant]
     Active Substance: LACOSAMIDE
     Dosage: 200 MG, BID
     Route: 048

REACTIONS (5)
  - Stupor [Unknown]
  - Death [Fatal]
  - Mental status changes [Unknown]
  - Convulsion [Recovered/Resolved]
  - Partial seizures [Recovered/Resolved]
